FAERS Safety Report 4315448-3 (Version None)
Quarter: 2004Q1

REPORT INFORMATION
  Report Type: 
  Country: None (occurrence: None)
  Receive Date: 20040310
  Receipt Date: 20040226
  Transmission Date: 20041129
  Serious: Yes (Other)
  Sender: FDA-Public Use
  Company Number: US-JNJFOC-20040206351

PATIENT
  Age: 41 Year
  Sex: Female
  Weight: 76.2043 kg

DRUGS (6)
  1. DURAGESIC [Suspect]
     Indication: PAIN
     Dosage: SEE IMAGE
     Route: 062
     Dates: start: 20030101
  2. DURAGESIC [Suspect]
     Indication: PAIN
     Dosage: SEE IMAGE
     Route: 062
     Dates: start: 20030201
  3. DURAGESIC [Suspect]
  4. LEVOXYL [Concomitant]
  5. LORCET-HD [Concomitant]
  6. HYDROXYQUININE (HYDROXYQUINOLINE) [Concomitant]

REACTIONS (12)
  - ABNORMAL BEHAVIOUR [None]
  - APPLICATION SITE ERYTHEMA [None]
  - APPLICATION SITE PRURITUS [None]
  - APPLICATION SITE VESICLES [None]
  - ARTHRALGIA [None]
  - DEPRESSION [None]
  - OEDEMA PERIPHERAL [None]
  - PHARMACEUTICAL PRODUCT COMPLAINT [None]
  - SCHIZOPHRENIFORM DISORDER [None]
  - SUICIDAL IDEATION [None]
  - THERAPEUTIC RESPONSE DECREASED [None]
  - WEIGHT INCREASED [None]
